FAERS Safety Report 7214746-3 (Version None)
Quarter: 2011Q1

REPORT INFORMATION
  Report Type: 
  Country: None (occurrence: None)
  Receive Date: 20110107
  Receipt Date: 20100107
  Transmission Date: 20110831
  Serious: No
  Sender: FDA-Public Use
  Company Number: A0840379A

PATIENT

DRUGS (2)
  1. NO CONCURRENT MEDICATION [Concomitant]
  2. LOVAZA [Suspect]
     Dosage: 4G PER DAY
     Route: 048
     Dates: start: 20091001, end: 20091001

REACTIONS (1)
  - DIARRHOEA [None]
